FAERS Safety Report 5623251-7 (Version None)
Quarter: 2008Q1

REPORT INFORMATION
  Report Type: 
  Country: None (occurrence: None)
  Receive Date: 20080115
  Receipt Date: 20070906
  Transmission Date: 20080703
  Serious: Yes (Other)
  Sender: FDA-Public Use
  Company Number: 2007000032

PATIENT
  Age: 64 Year
  Sex: Female
  Weight: 56.7 kg

DRUGS (8)
  1. AROMASIN [Suspect]
     Indication: BREAST CANCER
     Dosage: 25 MG (25 MG,1 IN 1 D),ORAL
     Route: 048
     Dates: start: 20051001
  2. INDERAL [Concomitant]
  3. MULTI-VITAMINS [Concomitant]
  4. CALCIUM (CALCIUM) [Concomitant]
  5. VITAMIN D [Concomitant]
  6. B COMPLEX (NICOTINAMIDE, PYRIDOXINE HYDROCHLORIDE, RIBOFLAVIN, THIAMIN [Concomitant]
  7. CO-Q-10 (UBIDECARENONE) [Concomitant]
  8. ESTER-C (CALCIUM ASCORBATE) [Concomitant]

REACTIONS (6)
  - ARTHRALGIA [None]
  - ARTHRITIS [None]
  - MUSCLE SPASMS [None]
  - MUSCULOSKELETAL STIFFNESS [None]
  - OSTEOPENIA [None]
  - PAIN [None]
